FAERS Safety Report 5134741-8 (Version None)
Quarter: 2006Q4

REPORT INFORMATION
  Report Type: 
  Country: None (occurrence: None)
  Receive Date: 20061025
  Receipt Date: 20060713
  Transmission Date: 20070319
  Serious: Yes (Other)
  Sender: FDA-Public Use
  Company Number: US-ROCHE-455562

PATIENT
  Age: 55 Year
  Sex: Male
  Weight: 90.7 kg

DRUGS (5)
  1. PEGASYS [Suspect]
     Indication: HEPATITIS C VIRUS
     Route: 058
     Dates: start: 20050918, end: 20060820
  2. COPEGUS [Suspect]
     Indication: HEPATITIS C VIRUS
     Route: 048
     Dates: start: 20050918, end: 20060820
  3. EPOGEN [Suspect]
     Indication: ANAEMIA
     Route: 058
     Dates: start: 20060503, end: 20060720
  4. ZOLOFT [Concomitant]
     Indication: ANXIETY
     Route: 048
  5. LUNESTA [Concomitant]
     Indication: SLEEP DISORDER
     Dates: start: 20060115

REACTIONS (4)
  - ANAEMIA [None]
  - INSOMNIA [None]
  - PAIN IN EXTREMITY [None]
  - VENOUS THROMBOSIS [None]
